APPROVED DRUG PRODUCT: CLOBAZAM
Active Ingredient: CLOBAZAM
Strength: 20MG
Dosage Form/Route: TABLET;ORAL
Application: A209308 | Product #002
Applicant: NOVITIUM PHARMA LLC
Approved: Oct 22, 2018 | RLD: No | RS: No | Type: DISCN